FAERS Safety Report 5781066-3 (Version None)
Quarter: 2008Q2

REPORT INFORMATION
  Report Type: 
  Country: None (occurrence: None)
  Receive Date: 20080620
  Receipt Date: 20080610
  Transmission Date: 20081010
  Serious: Yes (Other)
  Sender: FDA-Public Use
  Company Number: US-GILEAD-2008-0016887

PATIENT
  Age: 30 Year
  Sex: Female

DRUGS (4)
  1. TRUVADA [Suspect]
     Dosage: 200/300 MG
     Route: 048
     Dates: start: 20050801, end: 20080224
  2. COMBIVIR [Suspect]
     Route: 048
     Dates: start: 20080225
  3. REYATAZ [Suspect]
     Route: 048
     Dates: start: 20050801
  4. RITONAVIR [Suspect]
     Route: 048
     Dates: start: 20050801

REACTIONS (3)
  - DRUG ABUSE [None]
  - PREGNANCY [None]
  - PREMATURE LABOUR [None]
